FAERS Safety Report 25255717 (Version 2)
Quarter: 2025Q2

REPORT INFORMATION
  Report Type: Spontaneous
  Country: US (occurrence: US)
  Receive Date: 20250430
  Receipt Date: 20250529
  Transmission Date: 20250717
  Serious: Yes (Other)
  Sender: PFIZER
  Company Number: US-PFIZER INC-202500090515

PATIENT
  Age: 50 Year
  Sex: Female
  Weight: 58.97 kg

DRUGS (1)
  1. ESTRING [Suspect]
     Active Substance: ESTRADIOL
     Indication: Menopausal symptoms
     Dosage: 1 DF, EVERY 3 MONTHS

REACTIONS (4)
  - Vaginal discharge [Recovered/Resolved]
  - Vaginal infection [Recovered/Resolved]
  - Poor quality device used [Unknown]
  - Product odour abnormal [Unknown]

NARRATIVE: CASE EVENT DATE: 20250401
